FAERS Safety Report 24263990 (Version 1)
Quarter: 2024Q3

REPORT INFORMATION
  Report Type: Spontaneous
  Country: CN (occurrence: CN)
  Receive Date: 20240829
  Receipt Date: 20240829
  Transmission Date: 20241016
  Serious: Yes (Hospitalization)
  Sender: ROCHE
  Company Number: CN-BoehringerIngelheim-2024-BI-047627

PATIENT
  Age: 34 Year
  Sex: Male
  Weight: 73.5 kg

DRUGS (2)
  1. ALTEPLASE [Suspect]
     Active Substance: ALTEPLASE
     Indication: Thrombolysis
     Dosage: 10% IV BOLUS. TOTAL DOSE 64 MG
     Route: 042
     Dates: start: 20240813, end: 20240813
  2. ALTEPLASE [Suspect]
     Active Substance: ALTEPLASE
     Dosage: WITH THE REMAINING 60 POINTS VIA INTRAVENOUS DRIP. TOTAL DOSE 64 MG
     Route: 042
     Dates: start: 20240813, end: 20240813

REACTIONS (3)
  - Cerebral haemorrhage [Not Recovered/Not Resolved]
  - Sinus tachycardia [Not Recovered/Not Resolved]
  - Blood pressure increased [Not Recovered/Not Resolved]

NARRATIVE: CASE EVENT DATE: 20240813
